FAERS Safety Report 5035454-3 (Version None)
Quarter: 2006Q2

REPORT INFORMATION
  Report Type: 
  Country: None (occurrence: None)
  Receive Date: 20060526
  Receipt Date: 20060306
  Transmission Date: 20061013
  Serious: No
  Sender: FDA-Public Use
  Company Number: FABR-11435

PATIENT
  Age: 38 Year
  Sex: Male

DRUGS (3)
  1. FABRAZYME [Suspect]
     Indication: FABRY'S DISEASE
     Dosage: 1 MG/KG  Q2WKS  IV
     Route: 042
  2. ACE INHIBITOR [Concomitant]
  3. CALCIUM CHANNEL BLOCKER [Concomitant]

REACTIONS (1)
  - GLOMERULAR FILTRATION RATE DECREASED [None]
